FAERS Safety Report 9413750 (Version 1)
Quarter: 2013Q3

REPORT INFORMATION
  Report Type: Spontaneous
  Country: US (occurrence: US)
  Receive Date: 20130722
  Receipt Date: 20130722
  Transmission Date: 20140515
  Serious: No
  Sender: FDA-Public Use
  Company Number: US-009507513-1307USA004271

PATIENT
  Age: 37 Year
  Sex: Male

DRUGS (1)
  1. ZETIA [Suspect]
     Indication: HYPERCHOLESTEROLAEMIA
     Dosage: 10 MG ONCE DAILY AT NIGHT
     Route: 048
     Dates: start: 20130620, end: 20130701

REACTIONS (6)
  - Feeling abnormal [Recovering/Resolving]
  - Fatigue [Recovered/Resolved]
  - Malaise [Recovering/Resolving]
  - Myalgia [Recovering/Resolving]
  - Hepatic enzyme abnormal [Recovering/Resolving]
  - Dyspnoea [Recovering/Resolving]
